FAERS Safety Report 21081575 (Version 1)
Quarter: 2022Q3

REPORT INFORMATION
  Report Type: Spontaneous
  Country: US (occurrence: None)
  Receive Date: 20220713
  Receipt Date: 20220713
  Transmission Date: 20221027
  Serious: Yes (Other)
  Sender: FDA-Public Use
  Company Number: None

PATIENT
  Age: 61 Year
  Sex: Female
  Weight: 101.25 kg

DRUGS (15)
  1. ZILRETTA [Suspect]
     Active Substance: TRIAMCINOLONE ACETONIDE
     Indication: Arthralgia
     Dosage: OTHER QUANTITY : 1 INJECTION(S);?OTHER ROUTE : INJECTED INTO LEFT KNEE JOINT;?
     Route: 050
     Dates: start: 20220615, end: 20220615
  2. PROPRANOLOL [Concomitant]
     Active Substance: PROPRANOLOL HYDROCHLORIDE
  3. hctz/triam [Concomitant]
  4. DIAZEPAM [Concomitant]
     Active Substance: DIAZEPAM
  5. ASPIRIN [Concomitant]
     Active Substance: ASPIRIN
  6. ZYRTEC [Concomitant]
     Active Substance: CETIRIZINE HYDROCHLORIDE
  7. METHOCARBAMOL [Concomitant]
     Active Substance: METHOCARBAMOL
  8. prilosec [Concomitant]
  9. AMBIEN [Concomitant]
     Active Substance: ZOLPIDEM TARTRATE
  10. monthly emgality 120 (6/13/22) [Concomitant]
  11. RIZATRIPTAN [Concomitant]
     Active Substance: RIZATRIPTAN
  12. botox 100mg every 11 weeks (6/9/22) [Concomitant]
  13. .DELTA.8-TETRAHYDROCANNABINOL\HERBALS [Concomitant]
     Active Substance: .DELTA.8-TETRAHYDROCANNABINOL\HERBALS
  14. STOOL SOFTENER (DOCUSATE) [Concomitant]
     Active Substance: DOCUSATE
  15. VOLTAREN [Concomitant]
     Active Substance: DICLOFENAC SODIUM

REACTIONS (7)
  - Joint swelling [None]
  - Arthralgia [None]
  - Joint stiffness [None]
  - Post procedural complication [None]
  - Musculoskeletal pain [None]
  - Burning sensation [None]
  - Gait disturbance [None]

NARRATIVE: CASE EVENT DATE: 20220615
